FAERS Safety Report 4878584-9 (Version None)
Quarter: 2006Q1

REPORT INFORMATION
  Report Type: 
  Country: None (occurrence: None)
  Receive Date: 20060112
  Receipt Date: 20060109
  Transmission Date: 20060701
  Serious: Yes (Hospitalization)
  Sender: FDA-Public Use
  Company Number: US-BOEHRINGER INGELHEIM PHARMACEUTICALS, INC.-2006-BP-00221BP

PATIENT
  Sex: Male

DRUGS (1)
  1. ATROVENT [Suspect]
     Dates: end: 20051201

REACTIONS (1)
  - BRONCHITIS [None]
